FAERS Safety Report 5777503-0 (Version None)
Quarter: 2008Q2

REPORT INFORMATION
  Report Type: 
  Country: None (occurrence: None)
  Receive Date: 20080618
  Receipt Date: 20080606
  Transmission Date: 20081010
  Serious: Yes (Life-Threatening)
  Sender: FDA-Public Use
  Company Number: GB-ROCHE-568989

PATIENT
  Age: 38 Year
  Sex: Female
  Weight: 91 kg

DRUGS (5)
  1. PEGASYS [Suspect]
     Indication: DRUG USE FOR UNKNOWN INDICATION
     Route: 058
     Dates: start: 20080226
  2. CETIRIZINE HCL [Concomitant]
     Route: 048
     Dates: start: 20080304
  3. CITALOPRAM HYDROBROMIDE [Concomitant]
     Route: 048
     Dates: start: 20080226
  4. REBETOL [Concomitant]
     Route: 048
     Dates: start: 20080226
  5. ZOPICLONE [Concomitant]
     Route: 048
     Dates: start: 20080304

REACTIONS (1)
  - CONVULSION [None]
